FAERS Safety Report 25499642 (Version 3)
Quarter: 2025Q3

REPORT INFORMATION
  Report Type: Spontaneous
  Country: GB (occurrence: GB)
  Receive Date: 20250701
  Receipt Date: 20250714
  Transmission Date: 20251021
  Serious: Yes (Death, Hospitalization, Other)
  Sender: SANOFI AVENTIS
  Company Number: None

PATIENT
  Age: 59 Year
  Sex: Male
  Weight: 95 kg

DRUGS (10)
  1. ENOXAPARIN SODIUM [Suspect]
     Active Substance: ENOXAPARIN SODIUM
     Indication: Thrombosis prophylaxis
     Dosage: 40 MG, QD
     Route: 058
     Dates: start: 20250605, end: 20250617
  2. HEPARIN [Suspect]
     Active Substance: HEPARIN SODIUM
     Dates: start: 2025
  3. TOCILIZUMAB [Concomitant]
     Active Substance: TOCILIZUMAB
     Indication: Rheumatoid arthritis
     Dosage: 162 MG, QW
     Route: 065
     Dates: start: 2025
  4. AMITRIPTYLINE [Concomitant]
     Active Substance: AMITRIPTYLINE
     Dosage: 10 MG, HS (AT NIGHT)
     Route: 048
     Dates: start: 20250625
  5. ACETAMINOPHEN [Concomitant]
     Active Substance: ACETAMINOPHEN
     Dosage: 2 DF, QID (PRN)
     Route: 065
  6. ACETAMINOPHEN [Concomitant]
     Active Substance: ACETAMINOPHEN
     Dosage: 2.000DF QID
  7. FOLIC ACID [Concomitant]
     Active Substance: FOLIC ACID
     Dosage: 5 MG, QD (EXCEPT METHOTREXATE DAY)
     Route: 065
  8. FOLIC ACID [Concomitant]
     Active Substance: FOLIC ACID
     Dosage: EXCEPT METHOTREXATE DAY
  9. OXYCODONE [Concomitant]
     Active Substance: OXYCODONE
     Indication: Analgesic therapy
     Dosage: UNK, Q4H (PRN)
     Route: 065
  10. METHOTREXATE [Concomitant]
     Active Substance: METHOTREXATE
     Indication: Rheumatoid arthritis
     Dosage: 20 MG, QW (0MG/0.4ML SOLUTION FORINJECTION PRE-FILLED SYRINGES)
     Route: 058

REACTIONS (12)
  - Heparin-induced thrombocytopenia [Fatal]
  - Aortic occlusion [Unknown]
  - Renal infarct [Unknown]
  - Feeling cold [Unknown]
  - Pallor [Unknown]
  - Pulmonary embolism [Unknown]
  - Back pain [Unknown]
  - Peripheral coldness [Unknown]
  - Sensory loss [Unknown]
  - Peripheral ischaemia [Not Recovered/Not Resolved]
  - Haemoptysis [Unknown]
  - Haematuria [Unknown]

NARRATIVE: CASE EVENT DATE: 20250101
